FAERS Safety Report 6270784-9 (Version None)
Quarter: 2009Q3

REPORT INFORMATION
  Report Type: 
  Country: None (occurrence: None)
  Receive Date: 20090716
  Receipt Date: 20090714
  Transmission Date: 20100115
  Serious: Yes (Hospitalization)
  Sender: FDA-Public Use
  Company Number: US-B.I. PHARMACEUTICALS,INC./RIDGEFIELD-2009-BP-08368BP

PATIENT
  Sex: Female

DRUGS (16)
  1. COMBIVENT [Suspect]
     Indication: ASTHMA
     Route: 055
     Dates: start: 20030101, end: 20090601
  2. XOPENEX [Suspect]
     Indication: ASTHMA
  3. MILK OF MAGNESIA TAB [Concomitant]
     Indication: IRRITABLE BOWEL SYNDROME
  4. MINERAL OIL [Concomitant]
     Indication: IRRITABLE BOWEL SYNDROME
  5. METAMUCIL [Concomitant]
     Indication: IRRITABLE BOWEL SYNDROME
  6. ZANTAC [Concomitant]
     Indication: IRRITABLE BOWEL SYNDROME
  7. HYOSCYAMINE [Concomitant]
     Indication: IRRITABLE BOWEL SYNDROME
     Route: 058
  8. ESTRADIOL [Concomitant]
     Indication: MENOPAUSE
  9. VIT D AND CALCIUM [Concomitant]
  10. SINGULAIR [Concomitant]
     Indication: MULTIPLE ALLERGIES
  11. ALLEGRA [Concomitant]
     Indication: MULTIPLE ALLERGIES
  12. SYMBICORT [Concomitant]
     Indication: ASTHMA
  13. AFRIN [Concomitant]
     Indication: MULTIPLE ALLERGIES
  14. DHEA [Concomitant]
     Indication: FIBROMYALGIA
  15. XANAX [Concomitant]
     Indication: ANXIETY
  16. LACTAID [Concomitant]
     Indication: IRRITABLE BOWEL SYNDROME

REACTIONS (6)
  - ABDOMINAL DISCOMFORT [None]
  - ASTHENIA [None]
  - BRONCHITIS [None]
  - FEELING ABNORMAL [None]
  - FUNGAL INFECTION [None]
  - NERVOUSNESS [None]
